FAERS Safety Report 18181626 (Version 1)
Quarter: 2020Q3

REPORT INFORMATION
  Report Type: Spontaneous
  Country: ES (occurrence: ES)
  Receive Date: 20200821
  Receipt Date: 20200821
  Transmission Date: 20201103
  Serious: Yes (Other)
  Sender: FDA-Public Use
  Company Number: ES-CADILA HEALTHCARE LIMITED-ES-ZYDUS-027867

PATIENT

DRUGS (9)
  1. CEFAZOLIN [Concomitant]
     Active Substance: CEFAZOLIN
  2. AMIODARONE [Suspect]
     Active Substance: AMIODARONE
     Dosage: 200 MILLIGRAM,(INTERVAL :12 HOURS)
     Dates: start: 20171219, end: 20180112
  3. LINEZOLID. [Suspect]
     Active Substance: LINEZOLID
     Indication: ANTIBIOTIC PROPHYLAXIS
     Dosage: 600 MILLIGRAM,(INTERVAL :1 DAYS)
     Dates: start: 20171221, end: 20180125
  4. TAZOBACTAM [Suspect]
     Active Substance: TAZOBACTAM
     Indication: ANTIBIOTIC PROPHYLAXIS
     Dosage: 2.25 GRAM,2.25 GRAMS EVERY 6 HOURS,(INTERVAL :6 HOURS)
     Dates: start: 20171221, end: 20171225
  5. METOCLOPRAMIDE. [Concomitant]
     Active Substance: METOCLOPRAMIDE
  6. OMEPRAZOLE. [Suspect]
     Active Substance: OMEPRAZOLE
     Indication: PROPHYLAXIS AGAINST GASTROINTESTINAL ULCER
     Dosage: 40 MILLIGRAM,(INTERVAL :1 DAYS)
     Route: 042
     Dates: start: 20171221, end: 20171225
  7. VANCOMYCIN [Concomitant]
     Active Substance: VANCOMYCIN
  8. FUROSEMIDE. [Concomitant]
     Active Substance: FUROSEMIDE
  9. DOMPERIDONE [Concomitant]
     Active Substance: DOMPERIDONE

REACTIONS (5)
  - Spontaneous haematoma [Recovering/Resolving]
  - Platelet count decreased [Not Recovered/Not Resolved]
  - Leukopenia [Recovered/Resolved]
  - Anaemia [Not Recovered/Not Resolved]
  - Hypertransaminasaemia [Recovered/Resolved]

NARRATIVE: CASE EVENT DATE: 20171224
